FAERS Safety Report 8857446 (Version 2)
Quarter: 2013Q2

REPORT INFORMATION
  Report Type: Spontaneous
  Country: US (occurrence: US)
  Receive Date: 20121024
  Receipt Date: 20130402
  Transmission Date: 20140414
  Serious: Yes (Hospitalization)
  Sender: FDA-Public Use
  Company Number: US-BAYER-2012-109315

PATIENT
  Age: 29 Year
  Sex: Female

DRUGS (12)
  1. OCELLA [Suspect]
     Dosage: 3-0.03 MG
  2. YAZ [Suspect]
  3. YASMIN [Suspect]
  4. HYDROCODONE/ACETAMINOPHEN [Concomitant]
  5. DARVOCET-N [Concomitant]
  6. NORFLEX [Concomitant]
     Dosage: UNK
     Dates: start: 20091120
  7. PERCOCET [Concomitant]
     Dosage: UNK
     Dates: start: 20091120
  8. NAPROXEN [Concomitant]
  9. CYCLOBENZAPRINE [Concomitant]
  10. FLEXERIL [Concomitant]
  11. PROCTOFOAM HC [Concomitant]
  12. TRIAMCINOLONE [Concomitant]

REACTIONS (4)
  - Pulmonary embolism [None]
  - Injury [None]
  - Pain [None]
  - Pain [None]
